FAERS Safety Report 5506137-8 (Version None)
Quarter: 2007Q4

REPORT INFORMATION
  Report Type: 
  Country: None (occurrence: None)
  Receive Date: 20071105
  Receipt Date: 20071023
  Transmission Date: 20080405
  Serious: Yes (Other)
  Sender: FDA-Public Use
  Company Number: US-KINGPHARMUSA00001-K200701376

PATIENT

DRUGS (7)
  1. ALTACE [Suspect]
     Indication: ESSENTIAL HYPERTENSION
     Dosage: UNK, QD
     Route: 048
     Dates: start: 20070919, end: 20071001
  2. ASPIRIN [Concomitant]
     Dosage: 1 DF, UNK
     Dates: start: 20070313
  3. BENDROFLUMETHIAZIDE [Concomitant]
     Dosage: 1 DF, QD
     Dates: start: 20000502
  4. DICLOFENAC SODIUM [Concomitant]
     Dosage: 1 DF, TID
     Dates: start: 20070815
  5. LERCANIDIPINE [Concomitant]
     Dosage: 1 DF, QD
     Dates: start: 20070815
  6. OXERUTINS [Concomitant]
     Dosage: 1 DF, TID
     Dates: start: 20050901
  7. SIMVASTATIN [Concomitant]
     Dosage: 1 DF, QD
     Dates: start: 20000526

REACTIONS (3)
  - COUGH [None]
  - HEADACHE [None]
  - MUSCLE SPASMS [None]
